FAERS Safety Report 13527089 (Version 1)
Quarter: 2017Q2

REPORT INFORMATION
  Report Type: Spontaneous
  Country: US (occurrence: US)
  Receive Date: 20170509
  Receipt Date: 20170509
  Transmission Date: 20170830
  Serious: Yes (Other)
  Sender: FDA-Public Use
  Company Number: US-ALLERGAN-1712929US

PATIENT
  Age: 75 Year
  Sex: Female

DRUGS (1)
  1. MONUROL [Suspect]
     Active Substance: FOSFOMYCIN TROMETHAMINE
     Indication: URINARY TRACT INFECTION
     Dosage: 1 ENTIRE PACKET IN 3-4 OZ OF WATER, EVERY 72 HOURS
     Route: 048
     Dates: start: 20170203, end: 201702

REACTIONS (6)
  - Weight decreased [Recovered/Resolved]
  - Impaired driving ability [Recovered/Resolved]
  - Gait disturbance [Recovered/Resolved]
  - Mental impairment [Recovered/Resolved]
  - Diarrhoea [Recovered/Resolved]
  - Nausea [Recovered/Resolved]

NARRATIVE: CASE EVENT DATE: 201702
